FAERS Safety Report 13256757 (Version 1)
Quarter: 2017Q1

REPORT INFORMATION
  Report Type: Spontaneous
  Country: US (occurrence: US)
  Receive Date: 20170221
  Receipt Date: 20170221
  Transmission Date: 20170428
  Serious: No
  Sender: FDA-Public Use
  Company Number: None

PATIENT
  Age: 47 Year
  Sex: Female
  Weight: 69.3 kg

DRUGS (1)
  1. BELVIQ [Suspect]
     Active Substance: LORCASERIN HYDROCHLORIDE
     Indication: WEIGHT DECREASED
     Dosage: ?          QUANTITY:1 CAPSULE(S);?
     Route: 048
     Dates: start: 20170216, end: 20170220

REACTIONS (6)
  - Depression [None]
  - Asthenia [None]
  - Feeling of despair [None]
  - Abdominal pain upper [None]
  - Crying [None]
  - Hunger [None]

NARRATIVE: CASE EVENT DATE: 20170218
